FAERS Safety Report 17319499 (Version 1)
Quarter: 2020Q1

REPORT INFORMATION
  Report Type: Spontaneous
  Country: US (occurrence: US)
  Receive Date: 20200125
  Receipt Date: 20200125
  Transmission Date: 20200409
  Serious: Yes (Other)
  Sender: FDA-Public Use
  Company Number: US-AMGEN-USASP2020009709

PATIENT
  Age: 73 Year
  Sex: Male

DRUGS (1)
  1. NPLATE [Suspect]
     Active Substance: ROMIPLOSTIM
     Indication: IMMUNE THROMBOCYTOPENIC PURPURA
     Dosage: 500 MICROGRAM
     Route: 065
     Dates: start: 2015

REACTIONS (1)
  - Platelet count increased [Unknown]

NARRATIVE: CASE EVENT DATE: 20200103
